FAERS Safety Report 19986395 (Version 1)
Quarter: 2021Q4

REPORT INFORMATION
  Report Type: Spontaneous
  Country: US (occurrence: US)
  Receive Date: 20211022
  Receipt Date: 20211022
  Transmission Date: 20220303
  Serious: No
  Sender: FDA-Public Use
  Company Number: US-ANTARES PHARMA, INC.-2021-SPO-TX-0396

PATIENT

DRUGS (1)
  1. XYOSTED [Suspect]
     Active Substance: TESTOSTERONE ENANTHATE
     Indication: Blood testosterone decreased
     Dosage: 75 MILLIGRAM, QWK
     Route: 058

REACTIONS (4)
  - Drug effect less than expected [Unknown]
  - Product administered at inappropriate site [Unknown]
  - Injection site bruising [Unknown]
  - Product administered at inappropriate site [Unknown]
